FAERS Safety Report 8440206-8 (Version None)
Quarter: 2012Q2

REPORT INFORMATION
  Report Type: 
  Country: None (occurrence: None)
  Receive Date: 20120615
  Receipt Date: 20120531
  Transmission Date: 20120825
  Serious: Yes (Death)
  Sender: FDA-Public Use
  Company Number: JP-ALEXION-A201200069

PATIENT
  Age: 77 Year
  Sex: Male

DRUGS (3)
  1. SOLIRIS [Suspect]
     Indication: PAROXYSMAL NOCTURNAL HAEMOGLOBINURIA
     Dosage: 900 MG, QW
     Route: 042
     Dates: start: 20110114, end: 20111208
  2. BLOOD TRANSFUSIONS [Suspect]
     Dosage: 42 UNITS, 5 TIMES
     Dates: start: 20110101, end: 20110101
  3. PREDNISOLONE [Concomitant]
     Dosage: 10 MG, QD
     Dates: start: 20060303, end: 20110127

REACTIONS (10)
  - AGITATION [None]
  - DELIRIUM [None]
  - DEMENTIA [None]
  - CARDIAC FAILURE [None]
  - DIABETES MELLITUS [None]
  - CONDITION AGGRAVATED [None]
  - HAEMOGLOBIN DECREASED [None]
  - AORTIC VALVE INCOMPETENCE [None]
  - AORTIC STENOSIS [None]
  - BLOOD LACTATE DEHYDROGENASE DECREASED [None]
